FAERS Safety Report 7126095-2 (Version None)
Quarter: 2010Q4

REPORT INFORMATION
  Report Type: 
  Country: None (occurrence: None)
  Receive Date: 20101115
  Receipt Date: 20101109
  Transmission Date: 20110411
  Serious: Yes (Life-Threatening)
  Sender: FDA-Public Use
  Company Number: 2010TJ0153

PATIENT
  Age: 55 Year
  Sex: Female

DRUGS (1)
  1. TWINJECT (EPINEEHRINE) INJECTION [Suspect]
     Dosage: 0.3 MG, AS NEEDED
     Dates: start: 20101108, end: 20101108

REACTIONS (2)
  - ANAPHYLACTIC REACTION [None]
  - WRONG TECHNIQUE IN DRUG USAGE PROCESS [None]
